FAERS Safety Report 17533358 (Version 2)
Quarter: 2020Q2

REPORT INFORMATION
  Report Type: Spontaneous
  Country: US (occurrence: US)
  Receive Date: 20200312
  Receipt Date: 20200623
  Transmission Date: 20200713
  Serious: Yes (Other)
  Sender: FDA-Public Use
  Company Number: US-PFIZER INC-2020107047

PATIENT
  Age: 64 Year
  Sex: Female
  Weight: 87.08 kg

DRUGS (5)
  1. IBRANCE [Suspect]
     Active Substance: PALBOCICLIB
     Indication: LIPOSARCOMA
     Dosage: 125 MG, DAILY (FOR 21 DAYS)
     Route: 048
     Dates: start: 20200218
  2. EXCEDRIN EXTRA STRENGTH [Concomitant]
     Active Substance: ACETAMINOPHEN\ASPIRIN\CAFFEINE
     Dosage: UNK, [EXCEDRIN EXTRA STRENGT 250-250]
  3. IBRANCE [Suspect]
     Active Substance: PALBOCICLIB
     Dosage: 125 MG, DAILY (FOR 21 DAYS)
     Route: 048
     Dates: start: 20200218
  4. ASPIRIN EC [Concomitant]
     Active Substance: ASPIRIN
     Dosage: UNK (81 MG)
  5. MELATONIN [Concomitant]
     Active Substance: MELATONIN
     Dosage: UNK (1 MG)

REACTIONS (11)
  - Neoplasm progression [Unknown]
  - Faeces soft [Unknown]
  - Haemorrhoids [Unknown]
  - Productive cough [Unknown]
  - Haematochezia [Unknown]
  - Rhinorrhoea [Unknown]
  - Multiple allergies [Unknown]
  - Upper-airway cough syndrome [Unknown]
  - Product use in unapproved indication [Unknown]
  - Flatulence [Unknown]
  - Off label use [Unknown]

NARRATIVE: CASE EVENT DATE: 2020
